FAERS Safety Report 6523889-9 (Version None)
Quarter: 2009Q4

REPORT INFORMATION
  Report Type: 
  Country: None (occurrence: None)
  Receive Date: 20091230
  Receipt Date: 20091230
  Transmission Date: 20100525
  Serious: Yes (Hospitalization)
  Sender: FDA-Public Use
  Company Number: None

PATIENT
  Age: 40 Year
  Sex: Male
  Weight: 102.5 kg

DRUGS (4)
  1. QUETIAPINE FUMARATE [Suspect]
     Indication: BIPOLAR DISORDER
     Dosage: 50MG PO X1
     Route: 048
     Dates: start: 20090924
  2. LORAZEPAM [Suspect]
     Indication: MANIA
     Dosage: 2MG IV X 1
     Route: 042
  3. HEPARIN [Concomitant]
  4. ASPIRIN [Concomitant]

REACTIONS (1)
  - SOMNOLENCE [None]
